FAERS Safety Report 22388179 (Version 1)
Quarter: 2023Q2

REPORT INFORMATION
  Report Type: Spontaneous
  Country: US (occurrence: US)
  Receive Date: 20230531
  Receipt Date: 20230531
  Transmission Date: 20230721
  Serious: No
  Sender: FDA-Public Use
  Company Number: US-SA-SAC20230530001103

PATIENT
  Sex: Female

DRUGS (1)
  1. LEFLUNOMIDE [Suspect]
     Active Substance: LEFLUNOMIDE
     Dosage: UNK UNK, QD

REACTIONS (5)
  - Fatigue [Unknown]
  - Brain fog [Unknown]
  - Fibromyalgia [Unknown]
  - Vision blurred [Unknown]
  - Alopecia [Unknown]
